FAERS Safety Report 7718654-0 (Version None)
Quarter: 2011Q3

REPORT INFORMATION
  Report Type: 
  Country: None (occurrence: None)
  Receive Date: 20110824
  Receipt Date: 20110812
  Transmission Date: 20111222
  Serious: No
  Sender: FDA-Public Use
  Company Number: B0739109A

PATIENT
  Age: 28 Year
  Sex: Male

DRUGS (7)
  1. DARUNAVIR ETHANOLATE [Suspect]
     Indication: HIV INFECTION
     Dosage: ORAL
     Route: 048
  2. CEFOTAXIME [Concomitant]
  3. STEROID [Concomitant]
  4. ZIDOVUDINE [Suspect]
     Indication: HIV INFECTION
  5. RITONAVIR [Suspect]
     Indication: HIV INFECTION
  6. ACYCLOVIR [Concomitant]
  7. LAMIVUDINE [Suspect]
     Indication: HIV INFECTION

REACTIONS (1)
  - AMNESIA [None]
